FAERS Safety Report 12640914 (Version 2)
Quarter: 2016Q4

REPORT INFORMATION
  Report Type: Spontaneous
  Country: JP (occurrence: JP)
  Receive Date: 20160810
  Receipt Date: 20161216
  Transmission Date: 20170207
  Serious: Yes (Hospitalization, Other)
  Sender: FDA-Public Use
  Company Number: JP-GLAXOSMITHKLINE-JP2016JPN114420

PATIENT
  Age: 78 Year
  Sex: Male
  Weight: 58 kg

DRUGS (8)
  1. AZILVA [Concomitant]
     Active Substance: AZILSARTAN KAMEDOXOMIL
     Dosage: UNK
  2. VALTREX [Suspect]
     Active Substance: VALACYCLOVIR HYDROCHLORIDE
     Indication: HERPES SIMPLEX
     Dosage: UNK
     Route: 048
     Dates: start: 20160727, end: 20160731
  3. AVOLVE [Concomitant]
     Active Substance: DUTASTERIDE
     Dosage: UNK
  4. BESACOLIN [Concomitant]
     Active Substance: BETHANECHOL CHLORIDE
     Dosage: UNK
  5. SENNOSIDE [Concomitant]
     Active Substance: SENNOSIDES
     Dosage: UNK
  6. URIEF [Concomitant]
     Active Substance: SILODOSIN
     Dosage: UNK
  7. CALONAL [Concomitant]
     Active Substance: ACETAMINOPHEN
     Dosage: UNK
  8. ACICLOVIR [Concomitant]
     Active Substance: ACYCLOVIR
     Indication: HERPES ZOSTER
     Dosage: 250 MG, TID
     Dates: start: 20160802, end: 20160809

REACTIONS (4)
  - Dehydration [Recovering/Resolving]
  - Urinary retention [Recovering/Resolving]
  - Malaise [Recovering/Resolving]
  - Dysuria [Recovering/Resolving]

NARRATIVE: CASE EVENT DATE: 20160801
